FAERS Safety Report 11598065 (Version 1)
Quarter: 2015Q4

REPORT INFORMATION
  Report Type: Spontaneous
  Country: US (occurrence: US)
  Receive Date: 20151006
  Receipt Date: 20151006
  Transmission Date: 20160304
  Serious: No
  Sender: FDA-Public Use
  Company Number: US-ROCHE-1614932

PATIENT
  Sex: Male

DRUGS (9)
  1. BUDESONIDE. [Concomitant]
     Active Substance: BUDESONIDE
  2. IPRATROPIUM BROMIDE. [Concomitant]
     Active Substance: IPRATROPIUM BROMIDE
  3. RESTASIS [Concomitant]
     Active Substance: CYCLOSPORINE
  4. SYSTANE (UNITED STATES) [Concomitant]
  5. PREDNISONE. [Concomitant]
     Active Substance: PREDNISONE
  6. PRIMIDONE. [Concomitant]
     Active Substance: PRIMIDONE
  7. GABAPENTIN. [Concomitant]
     Active Substance: GABAPENTIN
  8. LATANOPROST. [Concomitant]
     Active Substance: LATANOPROST
  9. ERIVEDGE [Suspect]
     Active Substance: VISMODEGIB
     Indication: BASAL CELL CARCINOMA
     Route: 048

REACTIONS (1)
  - Muscular weakness [Unknown]
